FAERS Safety Report 23425153 (Version 1)
Quarter: 2024Q1

REPORT INFORMATION
  Report Type: Other
  Country: IL (occurrence: None)
  Receive Date: 20240121
  Receipt Date: 20240121
  Transmission Date: 20240410
  Serious: No
  Sender: FDA-Public Use
  Company Number: IL-ROCHE-3492957

PATIENT
  Sex: Female

DRUGS (1)
  1. OCREVUS [Suspect]
     Active Substance: OCRELIZUMAB
     Indication: Secondary progressive multiple sclerosis
     Route: 042
     Dates: start: 20220202

REACTIONS (3)
  - Coronavirus infection [Unknown]
  - Muscular weakness [Unknown]
  - Oedema [Unknown]
